FAERS Safety Report 16120478 (Version 2)
Quarter: 2019Q2

REPORT INFORMATION
  Report Type: Report from Study
  Country: CA (occurrence: CA)
  Receive Date: 20190326
  Receipt Date: 20190418
  Transmission Date: 20190711
  Serious: No
  Sender: FDA-Public Use
  Company Number: CA-AMGEN-CANNI2019009707

PATIENT
  Age: 37 Year
  Sex: Female

DRUGS (3)
  1. AIMOVIG [Suspect]
     Active Substance: ERENUMAB-AOOE
     Dosage: UNK
     Route: 065
  2. AIMOVIG [Suspect]
     Active Substance: ERENUMAB-AOOE
     Indication: MIGRAINE
     Dosage: UNK
     Route: 065
     Dates: start: 20181220
  3. AIMOVIG [Suspect]
     Active Substance: ERENUMAB-AOOE
     Dosage: 140 MILLIGRAM, QMO
     Route: 058

REACTIONS (11)
  - Incorrect dose administered [Unknown]
  - Device malfunction [Unknown]
  - Diarrhoea [Unknown]
  - Migraine [Unknown]
  - Flatulence [Unknown]
  - Visual impairment [Unknown]
  - Dysmenorrhoea [Unknown]
  - Injection site pain [Unknown]
  - Menorrhagia [Unknown]
  - Constipation [Unknown]
  - Vomiting [Unknown]

NARRATIVE: CASE EVENT DATE: 20190115
